FAERS Safety Report 4635934-6 (Version None)
Quarter: 2005Q2

REPORT INFORMATION
  Report Type: 
  Country: None (occurrence: None)
  Receive Date: 20050413
  Receipt Date: 20050405
  Transmission Date: 20051028
  Serious: Yes (Death)
  Sender: FDA-Public Use
  Company Number: 163-20785-05040079

PATIENT
  Age: 77 Year
  Sex: Male

DRUGS (1)
  1. VINCRISTINE SULFATE [Suspect]
     Indication: APLASTIC ANAEMIA
     Dosage: 50 MG, QD, ORAL
     Route: 048
     Dates: start: 20040824, end: 20050101

REACTIONS (1)
  - LEUKAEMIA [None]
